FAERS Safety Report 24692441 (Version 2)
Quarter: 2024Q4

REPORT INFORMATION
  Report Type: Report from Study
  Country: US (occurrence: US)
  Receive Date: 20241203
  Receipt Date: 20241206
  Transmission Date: 20250114
  Serious: Yes (Hospitalization)
  Sender: JAZZ
  Company Number: US-JAZZ PHARMACEUTICALS-2024-US-022620

PATIENT
  Sex: Male

DRUGS (15)
  1. EPIDIOLEX [Suspect]
     Active Substance: CANNABIDIOL
     Indication: Lennox-Gastaut syndrome
     Dosage: 1.6 MILLILITER, BID
     Route: 048
     Dates: start: 20210729
  2. ALBUTEROL [Concomitant]
     Active Substance: ALBUTEROL
     Indication: Product used for unknown indication
     Dosage: UNK
  3. KEPPRA [Concomitant]
     Active Substance: LEVETIRACETAM
     Indication: Product used for unknown indication
     Dosage: UNK
  4. PREVACID [Concomitant]
     Active Substance: LANSOPRAZOLE
     Indication: Product used for unknown indication
     Dosage: UNK
  5. TOPAMAX [Concomitant]
     Active Substance: TOPIRAMATE
     Indication: Product used for unknown indication
     Dosage: UNK
  6. CHOLECALCIFEROL [Concomitant]
     Active Substance: CHOLECALCIFEROL
     Indication: Product used for unknown indication
     Dosage: UNK (1000 UNIT)
  7. VOLUMEN [Concomitant]
     Active Substance: BARIUM SULFATE
     Indication: Product used for unknown indication
     Dosage: UNK
  8. ZANTAC [Concomitant]
     Active Substance: RANITIDINE HYDROCHLORIDE
     Indication: Product used for unknown indication
     Dosage: UNK
  9. BACLOFEN [Concomitant]
     Active Substance: BACLOFEN
     Indication: Product used for unknown indication
     Dosage: 5 MILLIGRAM
  10. BACLOFEN [Concomitant]
     Active Substance: BACLOFEN
     Dosage: 10 MILLIGRAM
  11. CLOBAZAM [Concomitant]
     Active Substance: CLOBAZAM
     Indication: Product used for unknown indication
     Dosage: UNK
  12. FAMOTIDINE [Concomitant]
     Active Substance: FAMOTIDINE
     Indication: Product used for unknown indication
     Dosage: UNK
  13. CEPHALEXIN [Concomitant]
     Active Substance: CEPHALEXIN
     Indication: Product used for unknown indication
     Dosage: UNK
  14. LEVETIRACETAM [Concomitant]
     Active Substance: LEVETIRACETAM
     Indication: Product used for unknown indication
     Dosage: UNK
  15. PHENOBARBITAL [Concomitant]
     Active Substance: PHENOBARBITAL
     Indication: Product used for unknown indication
     Dosage: UNK

REACTIONS (1)
  - Hospitalisation [Not Recovered/Not Resolved]
